FAERS Safety Report 24254963 (Version 2)
Quarter: 2024Q3

REPORT INFORMATION
  Report Type: Spontaneous
  Country: US (occurrence: US)
  Receive Date: 20240827
  Receipt Date: 20240829
  Transmission Date: 20241017
  Serious: No
  Sender: PFIZER
  Company Number: US-BRISTOL-MYERS SQUIBB COMPANY-2024-132345

PATIENT
  Age: 62 Year
  Sex: Female

DRUGS (2)
  1. TUKYSA [Interacting]
     Active Substance: TUCATINIB
     Dosage: 150 MG, 1 TABLET IN THE MORNING AND 2 TABLETS IN THE EVENING
  2. ELIQUIS [Interacting]
     Active Substance: APIXABAN
     Dosage: UNK

REACTIONS (1)
  - Labelled drug-drug interaction medication error [Unknown]
